FAERS Safety Report 13011249 (Version 3)
Quarter: 2017Q2

REPORT INFORMATION
  Report Type: Spontaneous
  Country: US (occurrence: US)
  Receive Date: 20161208
  Receipt Date: 20170623
  Transmission Date: 20170830
  Serious: Yes (Hospitalization)
  Sender: FDA-Public Use
  Company Number: US-ASTRAZENECA-2016SF28443

PATIENT
  Age: 23513 Day
  Sex: Female

DRUGS (5)
  1. TAGRISSO [Suspect]
     Active Substance: OSIMERTINIB
     Indication: LUNG CARCINOMA CELL TYPE UNSPECIFIED STAGE 0
     Route: 048
     Dates: start: 20161108
  2. TAGRISSO [Suspect]
     Active Substance: OSIMERTINIB
     Indication: NON-SMALL CELL LUNG CANCER
     Route: 048
  3. TAGRISSO [Suspect]
     Active Substance: OSIMERTINIB
     Indication: LUNG CARCINOMA CELL TYPE UNSPECIFIED STAGE 0
     Route: 048
  4. TAGRISSO [Suspect]
     Active Substance: OSIMERTINIB
     Indication: NON-SMALL CELL LUNG CANCER
     Route: 048
     Dates: start: 20161108
  5. IRESSA [Suspect]
     Active Substance: GEFITINIB
     Dosage: UNKNOWN
     Route: 048

REACTIONS (13)
  - Diarrhoea [Unknown]
  - Acne [Unknown]
  - Viral test positive [Unknown]
  - Dizziness [Unknown]
  - Upper limb fracture [Unknown]
  - Fall [Unknown]
  - Flatulence [Unknown]
  - Stomatitis [Unknown]
  - Malaise [Unknown]
  - Nausea [Unknown]
  - Abdominal distension [Unknown]
  - Limb injury [Unknown]
  - Vomiting [Unknown]

NARRATIVE: CASE EVENT DATE: 20170417
